FAERS Safety Report 19832011 (Version 1)
Quarter: 2021Q3

REPORT INFORMATION
  Report Type: Spontaneous
  Country: US (occurrence: US)
  Receive Date: 20210913
  Receipt Date: 20210913
  Transmission Date: 20211014
  Serious: Yes (Disabling)
  Sender: FDA-Public Use
  Company Number: None

PATIENT
  Age: 59 Year
  Sex: Female
  Weight: 62.14 kg

DRUGS (16)
  1. METHYLPHENIDATE 34 [Suspect]
     Active Substance: METHYLPHENIDATE
     Indication: ATTENTION DEFICIT HYPERACTIVITY DISORDER
     Dosage: ?          QUANTITY:1 DF DOSAGE FORM; IN THE MORNING?
     Dates: start: 20210831, end: 20210907
  2. CONCERTA [Concomitant]
     Active Substance: METHYLPHENIDATE HYDROCHLORIDE
  3. FIBER [Concomitant]
     Active Substance: PSYLLIUM HUSK
  4. PROBIOTIC [Concomitant]
     Active Substance: PROBIOTICS NOS
  5. QUETIAPINE FUMARATE. [Concomitant]
     Active Substance: QUETIAPINE FUMARATE
  6. EZETOMIDE [Concomitant]
  7. URSODIOL. [Concomitant]
     Active Substance: URSODIOL
  8. MELATONIN [Concomitant]
     Active Substance: MELATONIN
  9. ZYRTEC [Concomitant]
     Active Substance: CETIRIZINE HYDROCHLORIDE
  10. DULOXETINE  DR [Concomitant]
     Active Substance: DULOXETINE
  11. OMEPRAZOLE DR [Concomitant]
     Active Substance: OMEPRAZOLE
  12. VITAMIN B12 [Concomitant]
     Active Substance: CYANOCOBALAMIN
  13. GAS?X [Concomitant]
     Active Substance: DIMETHICONE
  14. LEVOTHYROXINE. [Concomitant]
     Active Substance: LEVOTHYROXINE
  15. PREBIOTIC [Concomitant]
  16. XYLIMETIS [Concomitant]

REACTIONS (4)
  - Product substitution issue [None]
  - Feeling abnormal [None]
  - Thinking abnormal [None]
  - Therapy non-responder [None]

NARRATIVE: CASE EVENT DATE: 20210830
